FAERS Safety Report 16884803 (Version 2)
Quarter: 2019Q4

REPORT INFORMATION
  Report Type: Report from Study
  Country: US (occurrence: US)
  Receive Date: 20191004
  Receipt Date: 20191008
  Transmission Date: 20200122
  Serious: Yes (Hospitalization, Other)
  Sender: FDA-Public Use
  Company Number: US-ALEXION PHARMACEUTICALS INC.-A201914875

PATIENT
  Sex: Female

DRUGS (1)
  1. SOLIRIS [Suspect]
     Active Substance: ECULIZUMAB
     Indication: MYASTHENIA GRAVIS
     Route: 065

REACTIONS (13)
  - Respiratory tract congestion [Unknown]
  - Sinus disorder [Unknown]
  - Escherichia infection [Unknown]
  - Condition aggravated [Unknown]
  - Laryngitis [Unknown]
  - Oropharyngeal pain [Unknown]
  - Gastroenteritis viral [Unknown]
  - Urinary tract infection [Unknown]
  - Cough [Unknown]
  - Dysphonia [Unknown]
  - Spinal compression fracture [Unknown]
  - Asthenia [Unknown]
  - Fatigue [Unknown]
